FAERS Safety Report 7031280-4 (Version None)
Quarter: 2010Q4

REPORT INFORMATION
  Report Type: 
  Country: None (occurrence: None)
  Receive Date: 20101006
  Receipt Date: 20100927
  Transmission Date: 20110411
  Serious: Yes (Life-Threatening)
  Sender: FDA-Public Use
  Company Number: B0672240B

PATIENT
  Sex: Female
  Weight: 62 kg

DRUGS (4)
  1. PAXIL [Suspect]
     Indication: DEPRESSION
     Route: 048
     Dates: start: 20080101, end: 20100215
  2. VEGETAMIN A [Suspect]
     Indication: INSOMNIA
     Dosage: 2IUAX PER DAY
     Route: 048
     Dates: start: 20080101, end: 20100215
  3. ETHYL LOFLAZEPATE [Concomitant]
     Indication: INSOMNIA
     Dosage: .5IUAX PER DAY
     Route: 048
     Dates: start: 20080101, end: 20100215
  4. LENDORMIN [Concomitant]
     Indication: INSOMNIA
     Dosage: 1IUAX PER DAY
     Route: 048
     Dates: start: 20080101, end: 20100215

REACTIONS (8)
  - ABORTION INDUCED [None]
  - AGITATION [None]
  - ANXIETY [None]
  - CONFUSIONAL STATE [None]
  - DRUG EXPOSURE DURING PREGNANCY [None]
  - DRUG WITHDRAWAL SYNDROME [None]
  - FEELING OF DESPAIR [None]
  - SUICIDAL IDEATION [None]
